FAERS Safety Report 4757817-3 (Version None)
Quarter: 2005Q3

REPORT INFORMATION
  Report Type: 
  Country: None (occurrence: None)
  Receive Date: 20050830
  Receipt Date: 20050822
  Transmission Date: 20060218
  Serious: Yes (Death)
  Sender: FDA-Public Use
  Company Number: 2005-131755-NL

PATIENT
  Age: 30 Year
  Sex: Male

DRUGS (6)
  1. NANDROLONE DECANOATE [Suspect]
     Dosage: INTRAMUSCULAR
     Route: 030
     Dates: start: 20050806
  2. ALTERNATE DAY REGIMEN 2 (HRZE) 3 [Concomitant]
  3. ISONIAZID [Concomitant]
  4. RIFAMPICIN [Concomitant]
  5. PYRAZINAMIDE [Concomitant]
  6. ETHAMBUTOL HYDROCHLORIDE [Concomitant]

REACTIONS (1)
  - PULMONARY TUBERCULOSIS [None]
